FAERS Safety Report 7253740-3 (Version None)
Quarter: 2011Q1

REPORT INFORMATION
  Report Type: 
  Country: None (occurrence: None)
  Receive Date: 20110129
  Receipt Date: 20100202
  Transmission Date: 20110831
  Serious: No
  Sender: FDA-Public Use
  Company Number: US-ABBOTT-10P-163-0623669-00

PATIENT
  Sex: Female

DRUGS (5)
  1. LYRICA [Concomitant]
     Indication: FIBROMYALGIA
  2. HUMIRA [Suspect]
     Indication: RHEUMATOID ARTHRITIS
     Dates: start: 20080101
  3. UNKNOWN BLOOD PRESSURE MEDICATION [Concomitant]
     Indication: HYPERTENSION
  4. VALIUM [Concomitant]
     Indication: FIBROMYALGIA
  5. VALIUM [Concomitant]
     Indication: ANXIETY

REACTIONS (2)
  - BRONCHITIS [None]
  - NASOPHARYNGITIS [None]
